FAERS Safety Report 15594464 (Version 2)
Quarter: 2018Q4

REPORT INFORMATION
  Report Type: Spontaneous
  Country: GB (occurrence: GB)
  Receive Date: 20181107
  Receipt Date: 20181205
  Transmission Date: 20190205
  Serious: Yes (Life-Threatening, Hospitalization)
  Sender: FDA-Public Use
  Company Number: GB-FRESENIUS KABI-FK201811497

PATIENT
  Age: 76 Year
  Sex: Female

DRUGS (1)
  1. PACLITAXEL INJECTION [Suspect]
     Active Substance: PACLITAXEL
     Indication: BREAST CANCER
     Dosage: CYCLE NO. 3
     Route: 065
     Dates: start: 20181005

REACTIONS (1)
  - Respiratory failure [Not Recovered/Not Resolved]
